FAERS Safety Report 5352170-9 (Version None)
Quarter: 2007Q2

REPORT INFORMATION
  Report Type: 
  Country: None (occurrence: None)
  Receive Date: 20070606
  Receipt Date: 20070523
  Transmission Date: 20071010
  Serious: Yes (Hospitalization)
  Sender: FDA-Public Use
  Company Number: 012831

PATIENT
  Age: 49 Year
  Sex: Female

DRUGS (2)
  1. PRIALT [Suspect]
     Indication: CENTRAL PAIN SYNDROME
     Dosage: SEE IMAGE
     Route: 037
     Dates: end: 20070129
  2. LORAZEPAM [Concomitant]

REACTIONS (9)
  - ANOREXIA [None]
  - DELIRIUM [None]
  - DISTURBANCE IN ATTENTION [None]
  - DIZZINESS [None]
  - HALLUCINATION [None]
  - PSYCHIATRIC SYMPTOM [None]
  - RESTLESSNESS [None]
  - SUICIDAL IDEATION [None]
  - VISION BLURRED [None]
